FAERS Safety Report 12131352 (Version 1)
Quarter: 2016Q1

REPORT INFORMATION
  Report Type: Spontaneous
  Country: US (occurrence: None)
  Receive Date: 20160229
  Receipt Date: 20160229
  Transmission Date: 20160526
  Serious: No
  Sender: FDA-Public Use
  Company Number: None

PATIENT
  Age: 51 Year
  Sex: Female
  Weight: 68.04 kg

DRUGS (5)
  1. WATER PILL [Concomitant]
     Active Substance: UNSPECIFIED INGREDIENT
  2. VITAMINS [Concomitant]
     Active Substance: VITAMINS
  3. ICY HOT MEDICATED [Suspect]
     Active Substance: MENTHOL
     Indication: BACK PAIN
  4. OXYCODONE [Concomitant]
     Active Substance: OXYCODONE
  5. VALIUM [Concomitant]
     Active Substance: DIAZEPAM

REACTIONS (4)
  - Burns second degree [None]
  - Rash [None]
  - Application site burn [None]
  - Paraesthesia [None]

NARRATIVE: CASE EVENT DATE: 20160221
